FAERS Safety Report 15836264 (Version 2)
Quarter: 2019Q1

REPORT INFORMATION
  Report Type: Spontaneous
  Country: US (occurrence: US)
  Receive Date: 20190117
  Receipt Date: 20190211
  Transmission Date: 20190417
  Serious: Yes (Other)
  Sender: FDA-Public Use
  Company Number: US-ASTRAZENECA-2019SE06693

PATIENT
  Age: 280 Day
  Sex: Female
  Weight: 8.8 kg

DRUGS (7)
  1. ALBUTEROL SULFATE. [Concomitant]
     Active Substance: ALBUTEROL SULFATE
     Indication: COUGH
     Dosage: 0.083 PERCENT ONE VIAL EVERY 4-6 HOURS AS NEEDED
     Route: 055
     Dates: start: 201804
  2. PULMICORT TURBUHALER [Suspect]
     Active Substance: BUDESONIDE
     Indication: CHRONIC OBSTRUCTIVE PULMONARY DISEASE
     Route: 055
     Dates: start: 201804
  3. SYNAGIS [Suspect]
     Active Substance: PALIVIZUMAB
     Indication: CHRONIC OBSTRUCTIVE PULMONARY DISEASE
     Route: 030
     Dates: start: 20180821, end: 20181205
  4. ALBUTEROL SULFATE. [Concomitant]
     Active Substance: ALBUTEROL SULFATE
     Indication: WHEEZING
     Dosage: 0.083 PERCENT ONE VIAL EVERY 4-6 HOURS AS NEEDED
     Route: 055
     Dates: start: 201804
  5. SYNAGIS [Suspect]
     Active Substance: PALIVIZUMAB
     Indication: CORONARY ARTERY DISEASE
     Route: 030
     Dates: start: 20180821, end: 20181205
  6. SYNAGIS [Suspect]
     Active Substance: PALIVIZUMAB
     Indication: ANTIVIRAL PROPHYLAXIS
     Route: 030
     Dates: start: 20180821, end: 20181205
  7. ALBUTEROL SULFATE. [Concomitant]
     Active Substance: ALBUTEROL SULFATE
     Indication: CHRONIC OBSTRUCTIVE PULMONARY DISEASE
     Dosage: 0.083 PERCENT ONE VIAL EVERY 4-6 HOURS AS NEEDED
     Route: 055
     Dates: start: 201804

REACTIONS (6)
  - Rhinorrhoea [Recovered/Resolved]
  - Nasopharyngitis [Unknown]
  - Off label use [Unknown]
  - Product use in unapproved indication [Unknown]
  - Cough [Recovered/Resolved]
  - Wheezing [Recovered/Resolved]

NARRATIVE: CASE EVENT DATE: 20180821
